FAERS Safety Report 6176995-5 (Version None)
Quarter: 2009Q2

REPORT INFORMATION
  Report Type: 
  Country: None (occurrence: None)
  Receive Date: 20090501
  Receipt Date: 20090219
  Transmission Date: 20091009
  Serious: Yes (Hospitalization)
  Sender: FDA-Public Use
  Company Number: US-ALEXION-A200900116

PATIENT
  Sex: Male

DRUGS (11)
  1. SOLIRIS [Suspect]
     Indication: PAROXYSMAL NOCTURNAL HAEMOGLOBINURIA
     Dosage: 600 MG, QWK
     Dates: start: 20080804
  2. CYCLOSPORINE [Concomitant]
     Dosage: 100 MG, BID
     Route: 048
  3. NADOLOL [Concomitant]
     Dosage: 160 MG, IN THE MORNING
  4. NADOLOL [Concomitant]
     Dosage: 40 MG, IN THE EVENING
  5. WARFARIN SODIUM [Concomitant]
     Dosage: 5 MG, EVERY OTHER DAY
  6. WARFARIN SODIUM [Concomitant]
     Dosage: 2.5 MG, EVERY OTHER DAY
  7. SPIRONOLACTONE [Concomitant]
     Dosage: 150 MG, BID
     Route: 048
     Dates: end: 20080801
  8. SPIRONOLACTONE [Concomitant]
     Dosage: 100 MG, BID
     Route: 048
     Dates: start: 20080801
  9. FUROSEMIDE [Concomitant]
     Dosage: 80 MG, QD
     Route: 048
  10. PREDNISONE [Concomitant]
     Dosage: 10 MG, QD
     Route: 048
  11. ATIVAN [Concomitant]
     Dosage: 1 MG, QHS
     Route: 048

REACTIONS (3)
  - ASCITES [None]
  - HYPERKALAEMIA [None]
  - HYPONATRAEMIA [None]
